FAERS Safety Report 5752425-X (Version None)
Quarter: 2008Q2

REPORT INFORMATION
  Report Type: 
  Country: None (occurrence: None)
  Receive Date: 20080529
  Receipt Date: 20080523
  Transmission Date: 20081010
  Serious: Yes (Hospitalization)
  Sender: FDA-Public Use
  Company Number: B0518954A

PATIENT
  Age: 46 Year
  Sex: Female
  Weight: 62 kg

DRUGS (2)
  1. LAPATINIB [Suspect]
     Dosage: 1250MG PER DAY
     Route: 048
     Dates: start: 20080419
  2. XELODA [Suspect]
     Dosage: 3300MG PER DAY
     Route: 048
     Dates: start: 20080419

REACTIONS (5)
  - HERPES ZOSTER [None]
  - NEUTROPENIA [None]
  - PAIN [None]
  - PRURITUS [None]
  - RASH [None]
